FAERS Safety Report 11519717 (Version 1)
Quarter: 2015Q3

REPORT INFORMATION
  Report Type: Spontaneous
  Country: US (occurrence: None)
  Receive Date: 20150916
  Receipt Date: 20150916
  Transmission Date: 20151125
  Serious: No
  Sender: FDA-Public Use
  Company Number: None

PATIENT
  Age: 64 Year
  Sex: Female

DRUGS (18)
  1. TRAMADOL HCL [Concomitant]
     Active Substance: TRAMADOL HYDROCHLORIDE
  2. TRAZODONE [Concomitant]
     Active Substance: TRAZODONE HYDROCHLORIDE
  3. TRIAMCINOLON [Concomitant]
  4. ECONAZOLE [Concomitant]
     Active Substance: ECONAZOLE
  5. FISH OIL [Concomitant]
     Active Substance: FISH OIL
  6. LEVOTHYROXIN INJ [Concomitant]
  7. ZOLPIDEM [Concomitant]
     Active Substance: ZOLPIDEM\ZOLPIDEM TARTRATE
  8. MULTI CAP COMPLETE [Concomitant]
  9. BIOTIN [Concomitant]
     Active Substance: BIOTIN
  10. ATROPINE. [Concomitant]
     Active Substance: ATROPINE
  11. OPIUM. [Concomitant]
     Active Substance: OPIUM
  12. UREA TOPICAL SUS [Concomitant]
  13. SIMPONI [Suspect]
     Active Substance: GOLIMUMAB
     Indication: PSORIATIC ARTHROPATHY
     Route: 058
     Dates: start: 20150529, end: 201508
  14. RECLAST [Concomitant]
     Active Substance: ZOLEDRONIC ACID
  15. PREDNISONE. [Concomitant]
     Active Substance: PREDNISONE
  16. D 1000 [Concomitant]
     Active Substance: CHOLECALCIFEROL
  17. ETODOLAC. [Concomitant]
     Active Substance: ETODOLAC
  18. CIMZIA [Concomitant]
     Active Substance: CERTOLIZUMAB PEGOL

REACTIONS (1)
  - Drug ineffective [None]

NARRATIVE: CASE EVENT DATE: 201508
